FAERS Safety Report 6231816-7 (Version None)
Quarter: 2009Q2

REPORT INFORMATION
  Report Type: 
  Country: None (occurrence: None)
  Receive Date: 20090611
  Receipt Date: 20090611
  Transmission Date: 20091009
  Serious: Yes (Other)
  Sender: FDA-Public Use
  Company Number: None

PATIENT
  Age: 60 Year
  Sex: Female
  Weight: 70 kg

DRUGS (2)
  1. ODANSETRON 2MG/ML HOSPIRA INC. [Suspect]
     Indication: NAUSEA
     Dosage: 2ML -10 MG- ONCE IV BOLUS 3 INCIDENTS SINCE 7-3-08
     Route: 040
  2. MIDAZOLAM HCL [Suspect]

REACTIONS (3)
  - DEPRESSED LEVEL OF CONSCIOUSNESS [None]
  - SOMNOLENCE [None]
  - WRONG DRUG ADMINISTERED [None]
